FAERS Safety Report 22363118 (Version 1)
Quarter: 2023Q2

REPORT INFORMATION
  Report Type: Spontaneous
  Country: US (occurrence: US)
  Receive Date: 20230525
  Receipt Date: 20230525
  Transmission Date: 20230721
  Serious: No
  Sender: FDA-Public Use
  Company Number: US-UCBSA-2022039329

PATIENT
  Sex: Female
  Weight: 143.76 kg

DRUGS (2)
  1. CIMZIA [Suspect]
     Active Substance: CERTOLIZUMAB PEGOL
     Indication: Rheumatoid arthritis
     Dosage: 400 MILLIGRAM, EV 4 WEEKS
     Route: 058
     Dates: start: 202205
  2. CIMZIA [Suspect]
     Active Substance: CERTOLIZUMAB PEGOL
     Indication: Iridocyclitis

REACTIONS (9)
  - Injection site pain [Unknown]
  - Injection site bruising [Unknown]
  - Photosensitivity reaction [Unknown]
  - Pyrexia [Unknown]
  - Formication [Unknown]
  - Back pain [Unknown]
  - Product use in unapproved indication [Unknown]
  - Product availability issue [Unknown]
  - Therapy interrupted [Unknown]
